FAERS Safety Report 5399373-5 (Version None)
Quarter: 2007Q3

REPORT INFORMATION
  Report Type: 
  Country: None (occurrence: None)
  Receive Date: 20070727
  Receipt Date: 20070713
  Transmission Date: 20080115
  Serious: Yes (Other)
  Sender: FDA-Public Use
  Company Number: DE-GENENTECH-245130

PATIENT
  Sex: Female

DRUGS (2)
  1. HERCEPTIN [Suspect]
     Indication: DRUG USE FOR UNKNOWN INDICATION
     Dosage: 2 MG/KG, UNK
  2. HERCEPTIN [Suspect]
     Dosage: 6 MG/KG, UNK

REACTIONS (3)
  - NAIL GROWTH ABNORMAL [None]
  - RASH [None]
  - SKIN DISORDER [None]
